FAERS Safety Report 7475231-7 (Version None)
Quarter: 2011Q2

REPORT INFORMATION
  Report Type: 
  Country: None (occurrence: None)
  Receive Date: 20110512
  Receipt Date: 20110502
  Transmission Date: 20111010
  Serious: Yes (Death, Hospitalization, Disabling)
  Sender: FDA-Public Use
  Company Number: DE-CELGENEUS-062-50794-11031170

PATIENT
  Age: 71 Year
  Sex: Female
  Weight: 71 kg

DRUGS (14)
  1. VIDAZA [Suspect]
     Dosage: 135 MILLIGRAM
     Route: 058
     Dates: start: 20110111, end: 20110115
  2. CYTARABINE [Suspect]
     Dosage: 36 GRAM
     Route: 051
     Dates: start: 20110411
  3. DAUNORUBICIN HCL [Suspect]
     Dosage: 108 MILLIGRAM
     Route: 051
     Dates: start: 20110211, end: 20110213
  4. VIDAZA [Suspect]
     Dosage: 140 MILLIGRAM
     Route: 051
     Dates: start: 20110204, end: 20110208
  5. CYTARABINE [Suspect]
     Dosage: 180 MILLIGRAM
     Route: 051
     Dates: start: 20110209, end: 20110215
  6. TAZOBAC [Concomitant]
     Dosage: 108
     Route: 051
     Dates: start: 20110211, end: 20110213
  7. VIDAZA [Suspect]
     Dosage: 135 MILLIGRAM
     Route: 058
     Dates: start: 20110406, end: 20110410
  8. CYTARABINE [Suspect]
     Route: 051
     Dates: start: 20110116, end: 20110122
  9. TAZOBAC [Concomitant]
     Indication: PNEUMONIA
     Dosage: 4.5 GRAM
     Route: 051
     Dates: start: 20110118, end: 20110128
  10. DAUNORUBICIN HCL [Suspect]
     Dosage: 112 MILLIGRAM
     Route: 051
     Dates: start: 20110118, end: 20110120
  11. VANCOMYCIN [Concomitant]
     Indication: PNEUMONIA
     Dosage: 2
     Route: 051
     Dates: start: 20110129, end: 20110207
  12. VANCOMYCIN [Concomitant]
     Dosage: 108
     Route: 051
     Dates: start: 20110211, end: 20110213
  13. MEROPENEM [Concomitant]
     Indication: PNEUMONIA
     Dosage: 3 GRAM
     Route: 051
     Dates: start: 20110129, end: 20110207
  14. MEROPENEM [Concomitant]
     Dosage: 108
     Route: 051
     Dates: start: 20110211, end: 20110213

REACTIONS (2)
  - CARDIAC FAILURE [None]
  - MULTI-ORGAN FAILURE [None]
